FAERS Safety Report 19325477 (Version 4)
Quarter: 2022Q2

REPORT INFORMATION
  Report Type: Spontaneous
  Country: US (occurrence: US)
  Receive Date: 20210528
  Receipt Date: 20220421
  Transmission Date: 20220721
  Serious: Yes (Hospitalization, Other)
  Sender: FDA-Public Use
  Company Number: US-SA-SAC20210527000779

PATIENT
  Age: 34 Year
  Sex: Female

DRUGS (2)
  1. DUPIXENT [Suspect]
     Active Substance: DUPILUMAB
     Indication: Dermatitis atopic
     Dosage: 300 MG, QOW
     Route: 058
     Dates: start: 20210306
  2. OXBRYTA [Concomitant]
     Active Substance: VOXELOTOR
     Dosage: UNK

REACTIONS (2)
  - Sickle cell anaemia with crisis [Unknown]
  - Hospitalisation [Unknown]

NARRATIVE: CASE EVENT DATE: 20210430
